FAERS Safety Report 8327809-6 (Version None)
Quarter: 2012Q2

REPORT INFORMATION
  Report Type: 
  Country: None (occurrence: None)
  Receive Date: 20120502
  Receipt Date: 20120427
  Transmission Date: 20120825
  Serious: No
  Sender: FDA-Public Use
  Company Number: US-PFIZER INC-2012105157

PATIENT
  Sex: Female
  Weight: 70.295 kg

DRUGS (1)
  1. ALAVERT [Suspect]
     Indication: SEASONAL ALLERGY
     Dosage: UNK
     Route: 048
     Dates: start: 20120426, end: 20120426

REACTIONS (2)
  - PERIPHERAL COLDNESS [None]
  - PALPITATIONS [None]
